FAERS Safety Report 9357794 (Version 1)
Quarter: 2013Q2

REPORT INFORMATION
  Report Type: Spontaneous
  Country: IT (occurrence: IT)
  Receive Date: 20130620
  Receipt Date: 20130620
  Transmission Date: 20140414
  Serious: Yes (Other)
  Sender: FDA-Public Use
  Company Number: IT-PFIZER INC-2013183134

PATIENT
  Sex: Female

DRUGS (1)
  1. RAMIPRIL [Suspect]
     Dosage: UNK

REACTIONS (3)
  - Urinary incontinence [Recovered/Resolved]
  - Abdominal pain [Recovered/Resolved]
  - Tinnitus [Recovered/Resolved]
